FAERS Safety Report 5484027-7 (Version None)
Quarter: 2007Q4

REPORT INFORMATION
  Report Type: 
  Country: None (occurrence: None)
  Receive Date: 20071009
  Receipt Date: 20071009
  Transmission Date: 20080405
  Serious: Yes (Hospitalization)
  Sender: FDA-Public Use
  Company Number: None

PATIENT
  Sex: Female
  Weight: 146.3 kg

DRUGS (2)
  1. CARBOPLATIN [Suspect]
     Dosage: 846 MG
  2. TAXOL [Suspect]
     Dosage: 350 MG

REACTIONS (7)
  - ABDOMINAL PAIN [None]
  - ANAEMIA [None]
  - BODY TEMPERATURE INCREASED [None]
  - CONSTIPATION [None]
  - HAEMATOMA [None]
  - NAUSEA [None]
  - WOUND INFECTION STAPHYLOCOCCAL [None]
